FAERS Safety Report 25712610 (Version 1)
Quarter: 2025Q3

REPORT INFORMATION
  Report Type: Spontaneous
  Country: US (occurrence: US)
  Receive Date: 20250821
  Receipt Date: 20250821
  Transmission Date: 20251020
  Serious: Yes (Other)
  Sender: PFIZER
  Company Number: US-PFIZER INC-PV202500100834

PATIENT
  Age: 61 Year
  Sex: Male

DRUGS (3)
  1. LORBRENA [Suspect]
     Active Substance: LORLATINIB
     Indication: Non-small cell lung cancer metastatic
     Dates: start: 201912
  2. LORBRENA [Suspect]
     Active Substance: LORLATINIB
  3. LORBRENA [Suspect]
     Active Substance: LORLATINIB

REACTIONS (5)
  - Neuropathy peripheral [Unknown]
  - Weight increased [Unknown]
  - Blood glucose increased [Unknown]
  - Memory impairment [Unknown]
  - Mood swings [Unknown]

NARRATIVE: CASE EVENT DATE: 20190101
